FAERS Safety Report 17285962 (Version 2)
Quarter: 2020Q4

REPORT INFORMATION
  Report Type: Spontaneous
  Country: FR (occurrence: FR)
  Receive Date: 20200118
  Receipt Date: 20201029
  Transmission Date: 20210113
  Serious: Yes (Hospitalization)
  Sender: FDA-Public Use
  Company Number: FR-SUN PHARMACEUTICAL INDUSTRIES LTD-2020RR-233563

PATIENT
  Age: 53 Year
  Sex: Male
  Weight: 65 kg

DRUGS (4)
  1. TEICOPLANINE MYLAN [Suspect]
     Active Substance: TEICOPLANIN
     Indication: INFECTION
     Dosage: NON RENSEIGNEE ()
     Route: 042
     Dates: start: 20191122, end: 20191202
  2. ABASAGLAR [Suspect]
     Active Substance: INSULIN GLARGINE
     Indication: DIABETES MELLITUS
     Dosage: NON RENSEIGNEE ()
     Route: 058
     Dates: start: 20191119, end: 20191201
  3. FLUCONAZOLE. [Suspect]
     Active Substance: FLUCONAZOLE
     Indication: INFECTION
     Dosage: NON RENSEIGNEE ()
     Route: 048
     Dates: start: 20191122, end: 20191202
  4. METFORMIN [Suspect]
     Active Substance: METFORMIN HYDROCHLORIDE
     Indication: DIABETES MELLITUS
     Dosage: NON RENSEIGNEE ()
     Route: 048
     Dates: start: 20191119, end: 20191203

REACTIONS (1)
  - Rash maculo-papular [Recovering/Resolving]

NARRATIVE: CASE EVENT DATE: 20191202
